FAERS Safety Report 9906595 (Version 1)
Quarter: 2014Q1

REPORT INFORMATION
  Report Type: Spontaneous
  Country: PL (occurrence: PL)
  Receive Date: 20140218
  Receipt Date: 20140218
  Transmission Date: 20141002
  Serious: Yes (Hospitalization, Disabling, Other)
  Sender: FDA-Public Use
  Company Number: PL-WATSON-2014-02427

PATIENT
  Age: 19 Year
  Sex: Male

DRUGS (4)
  1. CLOMIPRAMINE (UNKNOWN) [Suspect]
     Indication: DEPRESSED MOOD
     Dosage: 20 MG, DAILY
     Route: 065
  2. CLOMIPRAMINE (UNKNOWN) [Suspect]
     Indication: ANTIDEPRESSANT THERAPY
  3. D-PENICILLAMINE [Concomitant]
     Indication: HEPATO-LENTICULAR DEGENERATION
     Dosage: 1000 MG, DAILY
     Route: 065
     Dates: start: 200502
  4. D-PENICILLAMINE [Concomitant]
     Dosage: 100 MG, DAILY
     Route: 065
     Dates: start: 200501

REACTIONS (1)
  - Dystonia [Recovered/Resolved]
